FAERS Safety Report 5694530-2 (Version None)
Quarter: 2008Q2

REPORT INFORMATION
  Report Type: 
  Country: None (occurrence: None)
  Receive Date: 20080404
  Receipt Date: 20080326
  Transmission Date: 20081010
  Serious: Yes (Other)
  Sender: FDA-Public Use
  Company Number: US-BAYER-200818000NA

PATIENT
  Sex: Female

DRUGS (1)
  1. AVELOX [Suspect]
     Indication: DRUG USE FOR UNKNOWN INDICATION
     Dosage: TOTAL DAILY DOSE: 400 MG  UNIT DOSE: 400 MG
     Route: 048

REACTIONS (7)
  - ANAPHYLACTIC REACTION [None]
  - ASTHENIA [None]
  - HYPOAESTHESIA [None]
  - LIP SWELLING [None]
  - PHARYNGEAL OEDEMA [None]
  - RASH ERYTHEMATOUS [None]
  - SKIN BURNING SENSATION [None]
